FAERS Safety Report 4425862-3 (Version None)
Quarter: 2004Q3

REPORT INFORMATION
  Report Type: 
  Country: None (occurrence: None)
  Receive Date: 20040810
  Receipt Date: 20040730
  Transmission Date: 20050211
  Serious: Yes (Death, Hospitalization)
  Sender: FDA-Public Use
  Company Number: 2004SE03092

PATIENT
  Age: 69 Year
  Sex: Male
  Weight: 66 kg

DRUGS (10)
  1. BLOPRESS [Suspect]
     Indication: HYPERTENSION
     Dosage: 4 MG QD PO
     Route: 048
     Dates: start: 20010825, end: 20031127
  2. BUFFERIN [Concomitant]
  3. BISOPROLOL FUMARATE [Concomitant]
  4. TICLOPIDINE HCL [Concomitant]
  5. FAMOTIDINE [Concomitant]
  6. WARFARIN SODIUM [Concomitant]
  7. CIBENZOLINE SUCCINATE [Concomitant]
  8. BEPRIDIL [Concomitant]
  9. VERAPAMIL HYDROCHLORIDE [Concomitant]
  10. APRINDINE HYDROCHLORIDE [Concomitant]

REACTIONS (3)
  - ATRIAL FIBRILLATION [None]
  - INTERSTITIAL LUNG DISEASE [None]
  - PALPITATIONS [None]
